FAERS Safety Report 6115476-1 (Version None)
Quarter: 2009Q1

REPORT INFORMATION
  Report Type: 
  Country: None (occurrence: None)
  Receive Date: 20090313
  Receipt Date: 20090304
  Transmission Date: 20090719
  Serious: Yes (Other)
  Sender: FDA-Public Use
  Company Number: FR-JNJFOC-20090106261

PATIENT
  Sex: Female

DRUGS (7)
  1. REMINYL [Suspect]
     Indication: DEMENTIA ALZHEIMER'S TYPE
     Route: 048
  2. AMOXICILLIN [Suspect]
     Indication: URINARY TRACT INFECTION
  3. OFLOXACINE [Suspect]
  4. OFLOXACINE [Suspect]
     Indication: URINARY TRACT INFECTION
  5. OMEPRAZOLE [Suspect]
     Indication: DRUG USE FOR UNKNOWN INDICATION
     Route: 048
  6. DEXTROMETHORPHAN/PARACETAMOL/CAFFEINE [Suspect]
     Indication: PAIN
     Route: 048
  7. CIPROFLOXACIN HCL [Concomitant]
     Indication: INFECTION

REACTIONS (5)
  - CONFUSIONAL STATE [None]
  - DELIRIUM [None]
  - EYE ROLLING [None]
  - INCOHERENT [None]
  - LOSS OF CONSCIOUSNESS [None]
